FAERS Safety Report 9450199 (Version 1)
Quarter: 2013Q3

REPORT INFORMATION
  Report Type: Report from Study
  Country: MX (occurrence: MX)
  Receive Date: 20130809
  Receipt Date: 20130809
  Transmission Date: 20140515
  Serious: Yes (Death, Hospitalization, Other)
  Sender: FDA-Public Use
  Company Number: MX-SANOFI-AVENTIS-2013SA079149

PATIENT
  Age: 83 Year
  Sex: Male

DRUGS (9)
  1. ARAVA [Suspect]
     Indication: RHEUMATOID ARTHRITIS
     Route: 048
     Dates: start: 2003, end: 20130410
  2. COPLAVIX [Suspect]
     Indication: THROMBOSIS PROPHYLAXIS
     Route: 048
     Dates: end: 20130410
  3. CORDARONE [Suspect]
     Indication: PRODUCT USED FOR UNKNOWN INDICATION
     Route: 048
     Dates: end: 20130410
  4. LIPITOR [Concomitant]
     Route: 048
     Dates: end: 20130410
  5. BUMETANIDE [Concomitant]
     Indication: NEPHROPATHY
     Route: 048
     Dates: end: 20130410
  6. ALDACTONE [Concomitant]
     Route: 048
     Dates: end: 20130410
  7. EUTIROX [Concomitant]
     Route: 048
     Dates: end: 20130410
  8. ZYLOPRIM [Concomitant]
     Route: 048
     Dates: end: 20130410
  9. LOSEC [Concomitant]
     Route: 048
     Dates: end: 20130410

REACTIONS (3)
  - Respiratory arrest [Fatal]
  - Respiratory failure [Recovered/Resolved]
  - Respiratory failure [Unknown]
